FAERS Safety Report 9651092 (Version 2)
Quarter: 2013Q4

REPORT INFORMATION
  Report Type: Spontaneous
  Country: US (occurrence: US)
  Receive Date: 20131029
  Receipt Date: 20131121
  Transmission Date: 20140711
  Serious: No
  Sender: FDA-Public Use
  Company Number: US-PFIZER INC-2013306850

PATIENT
  Age: 41 Year
  Sex: Male
  Weight: 108.84 kg

DRUGS (1)
  1. RELPAX [Suspect]
     Indication: MIGRAINE
     Dosage: 20 MG, 1X/DAY
     Route: 048
     Dates: start: 20131024, end: 20131024

REACTIONS (2)
  - Drug ineffective [Unknown]
  - Flushing [Recovered/Resolved]
